FAERS Safety Report 10776247 (Version 6)
Quarter: 2015Q3

REPORT INFORMATION
  Report Type: Report from Study
  Country: CA (occurrence: CA)
  Receive Date: 20150209
  Receipt Date: 20150914
  Transmission Date: 20151125
  Serious: Yes (Hospitalization, Other)
  Sender: FDA-Public Use
  Company Number: CA-GILEAD-2015-0134041

PATIENT
  Age: 76 Year
  Sex: Female

DRUGS (2)
  1. AZTREONAM LYSINE [Suspect]
     Active Substance: AZTREONAM LYSINE
     Dosage: UNK
     Route: 055
     Dates: start: 201501
  2. AZTREONAM LYSINE [Suspect]
     Active Substance: AZTREONAM LYSINE
     Indication: CYSTIC FIBROSIS
     Dosage: UNK
     Route: 055

REACTIONS (16)
  - Malaise [Unknown]
  - Pyrexia [Unknown]
  - Myalgia [Unknown]
  - Nasopharyngitis [Unknown]
  - Nausea [Unknown]
  - Ear pain [Unknown]
  - Throat irritation [Unknown]
  - Oropharyngeal pain [Unknown]
  - Incorrect product storage [Unknown]
  - Pneumonia [Unknown]
  - Dizziness [Unknown]
  - Dehydration [Unknown]
  - Liquid product physical issue [Unknown]
  - Frustration [Unknown]
  - Chills [Unknown]
  - Incorrect route of drug administration [Unknown]

NARRATIVE: CASE EVENT DATE: 2014
